FAERS Safety Report 21136868 (Version 1)
Quarter: 2022Q3

REPORT INFORMATION
  Report Type: Spontaneous
  Country: US (occurrence: None)
  Receive Date: 20220726
  Receipt Date: 20220726
  Transmission Date: 20221027
  Serious: No
  Sender: FDA-Public Use
  Company Number: None

PATIENT
  Age: 56 Year
  Sex: Female
  Weight: 81 kg

DRUGS (9)
  1. PAXLOVID [Suspect]
     Active Substance: NIRMATRELVIR\RITONAVIR
     Indication: COVID-19 treatment
     Dosage: OTHER QUANTITY : 5 CAPSULE(S);?FREQUENCY : DAILY;?
     Route: 048
     Dates: start: 20220715, end: 20220719
  2. HUMIRA [Concomitant]
     Active Substance: ADALIMUMAB
  3. ARAVA [Concomitant]
     Active Substance: LEFLUNOMIDE
  4. CYMBALTA [Concomitant]
  5. AMITRIPTYLINE [Concomitant]
  6. ASTELIN [Concomitant]
     Active Substance: AZELASTINE HYDROCHLORIDE
  7. ZYRTEC [Concomitant]
     Active Substance: CETIRIZINE HYDROCHLORIDE
  8. VITAMIN D [Concomitant]
     Active Substance: VITAMIN D NOS
  9. FOLIC ACID [Concomitant]
     Active Substance: FOLIC ACID

REACTIONS (8)
  - COVID-19 [None]
  - Headache [None]
  - Oropharyngeal pain [None]
  - Respiratory tract congestion [None]
  - Upper-airway cough syndrome [None]
  - Cough [None]
  - Myalgia [None]
  - Fatigue [None]

NARRATIVE: CASE EVENT DATE: 20220722
